FAERS Safety Report 14959099 (Version 2)
Quarter: 2018Q3

REPORT INFORMATION
  Report Type: Spontaneous
  Country: US (occurrence: US)
  Receive Date: 20180531
  Receipt Date: 20180723
  Transmission Date: 20181010
  Serious: Yes (Hospitalization)
  Sender: FDA-Public Use
  Company Number: US-TEVA-2018-US-898449

PATIENT
  Age: 68 Year
  Sex: Male

DRUGS (3)
  1. LITHIUM. [Suspect]
     Active Substance: LITHIUM
     Indication: BIPOLAR DISORDER
     Dosage: 250 MILLIGRAM DAILY;
     Route: 065
  2. LITHIUM. [Suspect]
     Active Substance: LITHIUM
     Dosage: 125 MILLIGRAM DAILY;
     Route: 065
  3. OLANZAPINE. [Suspect]
     Active Substance: OLANZAPINE
     Indication: BIPOLAR DISORDER
     Route: 065

REACTIONS (3)
  - Paradoxical drug reaction [Recovering/Resolving]
  - Parkinsonism [Recovering/Resolving]
  - Withdrawal syndrome [Recovering/Resolving]
